FAERS Safety Report 9546851 (Version 1)
Quarter: 2013Q2

REPORT INFORMATION
  Report Type: Spontaneous
  Country: US (occurrence: None)
  Receive Date: 20130606
  Receipt Date: 20130606
  Transmission Date: 20140414
  Serious: No
  Sender: FDA-Public Use
  Company Number: 2013PROUSA02455

PATIENT
  Age: 75 Year
  Sex: Male
  Weight: 67 kg

DRUGS (7)
  1. PROVENGE (SIPULEUCEL-T) SUSPENSION, 250ML [Suspect]
     Indication: PROSTATE CANCER METASTATIC
     Route: 042
     Dates: start: 20121227, end: 20121227
  2. RASAGILINE MESYLATE [Concomitant]
  3. LUPRON DEPOT-3 MONTH (LEUPRORELIN ACETATE) [Concomitant]
  4. REQUIP (ROPINIROLE HYDROCHLORIDE) [Concomitant]
  5. WARFARIN SODIUM [Concomitant]
  6. ZOFRAN (ONDANSETRON HYDROCHLORIDE) [Concomitant]
  7. ACETAMINOPHEN (PARACETAMOL) [Concomitant]

REACTIONS (6)
  - Haematoma [None]
  - Poor venous access [None]
  - Bone pain [None]
  - Constipation [None]
  - Weight decreased [None]
  - Decreased appetite [None]
